FAERS Safety Report 8881149 (Version 3)
Quarter: 2012Q4

REPORT INFORMATION
  Report Type: 
  Country: JP (occurrence: JP)
  Receive Date: 20121031
  Receipt Date: 20121203
  Transmission Date: 20130627
  Serious: Yes (Hospitalization)
  Sender: FDA-Public Use
  Company Number: JP-SANOFI-AVENTIS-2012SA078020

PATIENT
  Age: 66 Year
  Sex: Female
  Weight: 53.5 kg

DRUGS (9)
  1. ONETAXOTERE [Suspect]
     Indication: CHEMOTHERAPY
     Dosage: in morning
dose -113mg/dose
     Route: 042
     Dates: start: 20121019, end: 20121019
  2. ENDOXAN [Suspect]
     Indication: CHEMOTHERAPY
     Dosage: in morning
dose- 906mg/dose
     Route: 042
     Dates: start: 20121019, end: 20121019
  3. LASIX [Concomitant]
  4. MEXITIL [Concomitant]
  5. ARTIST [Concomitant]
     Route: 048
  6. ATORVASTATIN [Concomitant]
     Route: 048
  7. GRANISETRON [Concomitant]
     Indication: ADJUVANT THERAPY
     Dosage: dose: 3 mg/dose
     Route: 042
     Dates: start: 20121019, end: 20121019
  8. DEXAMETHASONE SODIUM PHOSPHATE [Concomitant]
     Indication: ADJUVANT THERAPY
     Dosage: dose: 6.6 mg/dose
     Route: 042
     Dates: start: 20121019, end: 20121019
  9. DIPHENHYDRAMINE [Concomitant]
     Route: 048

REACTIONS (10)
  - Inappropriate antidiuretic hormone secretion [Recovered/Resolved]
  - Depressed level of consciousness [Unknown]
  - Convulsion [Recovering/Resolving]
  - Headache [Unknown]
  - Urine output decreased [Unknown]
  - Weight increased [Unknown]
  - Depressed level of consciousness [Recovering/Resolving]
  - Muscle rigidity [Recovering/Resolving]
  - Neutrophil count decreased [Recovered/Resolved]
  - Leukopenia [Recovered/Resolved]
